FAERS Safety Report 6149751-1 (Version None)
Quarter: 2009Q2

REPORT INFORMATION
  Report Type: 
  Country: None (occurrence: None)
  Receive Date: 20090409
  Receipt Date: 20090403
  Transmission Date: 20091009
  Serious: Yes (Other)
  Sender: FDA-Public Use
  Company Number: PHHY2009DE12789

PATIENT
  Age: 17 Year
  Sex: Female

DRUGS (2)
  1. CALCITONIN [Suspect]
     Indication: PROPHYLAXIS
     Dosage: 100 IU/WEEK
     Route: 045
  2. CALCITONIN [Suspect]
     Indication: ANEURYSMAL BONE CYST

REACTIONS (1)
  - BONE CYST [None]
